FAERS Safety Report 14994238 (Version 4)
Quarter: 2021Q4

REPORT INFORMATION
  Report Type: Spontaneous
  Country: JP (occurrence: JP)
  Receive Date: 20180611
  Receipt Date: 20211228
  Transmission Date: 20220304
  Serious: Yes (Death, Hospitalization, Other)
  Sender: FDA-Public Use
  Company Number: JP-BRISTOL-MYERS SQUIBB COMPANY-BMS-2018-007663

PATIENT
  Age: 78 Year
  Sex: Male
  Weight: 53.1 kg

DRUGS (7)
  1. OPDIVO [Suspect]
     Active Substance: NIVOLUMAB
     Indication: Gastric cancer recurrent
     Dosage: 160 MILLIGRAM, Q2WK
     Route: 041
     Dates: start: 20171211, end: 20171211
  2. OPDIVO [Suspect]
     Active Substance: NIVOLUMAB
     Dosage: 240 MILLIGRAM PER BODY
     Route: 041
  3. GASMOTIN [MOSAPRIDE CITRATE] [Concomitant]
     Indication: Product used for unknown indication
     Dosage: UNK
     Route: 065
  4. URSO [Concomitant]
     Active Substance: URSODIOL
     Indication: Product used for unknown indication
     Dosage: UNK
     Route: 065
  5. VONOPRAZAN FUMARATE [Concomitant]
     Active Substance: VONOPRAZAN FUMARATE
     Indication: Prophylaxis
     Dosage: 20 MILLIGRAM, EVERYDAY
     Route: 048
     Dates: start: 20170501, end: 20180214
  6. MAGNESIUM OXIDE [Concomitant]
     Active Substance: MAGNESIUM OXIDE
     Indication: Prophylaxis
     Dosage: 250 MILLIGRAM, Q8H
     Route: 048
     Dates: start: 20171010, end: 20180214
  7. PURSENNIDE [SENNOSIDE A+B CALCIUM] [Concomitant]
     Indication: Prophylaxis
     Dosage: 12 MILLIGRAM, EVERYDAY
     Route: 048
     Dates: start: 20171010, end: 20180219

REACTIONS (2)
  - Immune-mediated myositis [Fatal]
  - Prescribed overdose [Unknown]

NARRATIVE: CASE EVENT DATE: 20180115
